FAERS Safety Report 17160216 (Version 1)
Quarter: 2019Q4

REPORT INFORMATION
  Report Type: Spontaneous
  Country: DE (occurrence: DE)
  Receive Date: 20191216
  Receipt Date: 20191216
  Transmission Date: 20200122
  Serious: Yes (Death, Other)
  Sender: FDA-Public Use
  Company Number: DE-TAKEDA-2019TUS060950

PATIENT
  Age: 82 Year
  Sex: Female

DRUGS (1)
  1. ICLUSIG [Suspect]
     Active Substance: PONATINIB
     Indication: ACUTE LYMPHOCYTIC LEUKAEMIA
     Dosage: 30 MILLIGRAM
     Route: 048

REACTIONS (6)
  - Death [Fatal]
  - Cerebrovascular accident [Unknown]
  - Dysphagia [Unknown]
  - White blood cell count increased [Unknown]
  - Drug ineffective [Unknown]
  - Incorrect route of product administration [Unknown]
